FAERS Safety Report 8031083-8 (Version None)
Quarter: 2012Q1

REPORT INFORMATION
  Report Type: 
  Country: None (occurrence: None)
  Receive Date: 20120109
  Receipt Date: 20120103
  Transmission Date: 20120608
  Serious: Yes (Other)
  Sender: FDA-Public Use
  Company Number: US-CELGENEUS-163-21880-12010200

PATIENT
  Sex: Female

DRUGS (12)
  1. ACYCLOVIR [Concomitant]
     Route: 065
  2. LEVAQUIN [Concomitant]
     Route: 065
  3. REVLIMID [Suspect]
     Dosage: 5 MILLIGRAM
     Route: 048
     Dates: start: 20090430
  4. CENTRUM VITAMIN [Concomitant]
     Route: 065
  5. RESTASIS [Concomitant]
     Route: 065
  6. REVLIMID [Suspect]
     Indication: MULTIPLE MYELOMA
     Dosage: 15 MILLIGRAM
     Route: 048
     Dates: start: 20090430
  7. IBUPROFEN (ADVIL) [Concomitant]
     Route: 065
  8. ASPIRIN [Concomitant]
     Route: 065
  9. PANTOPRAZOLE [Concomitant]
     Route: 065
  10. SINGULAIR [Concomitant]
     Route: 065
  11. VELCADE [Concomitant]
     Route: 065
  12. DEXAMETHASONE [Concomitant]
     Route: 065

REACTIONS (1)
  - RENAL NEOPLASM [None]
